FAERS Safety Report 10850281 (Version 1)
Quarter: 2015Q1

REPORT INFORMATION
  Report Type: Spontaneous
  Country: US (occurrence: US)
  Receive Date: 20150221
  Receipt Date: 20150221
  Transmission Date: 20150721
  Serious: No
  Sender: FDA-Public Use
  Company Number: US-NOVEN-15US013230

PATIENT
  Age: 45 Year
  Sex: Female

DRUGS (4)
  1. TYLENOL [Concomitant]
     Active Substance: ACETAMINOPHEN
     Indication: SURGERY
  2. MINIVELLE [Suspect]
     Active Substance: ESTRADIOL
     Indication: HORMONE REPLACEMENT THERAPY
     Dosage: 0.1 MG, QD
     Route: 062
     Dates: start: 2012
  3. MINIVELLE [Suspect]
     Active Substance: ESTRADIOL
     Dosage: 0.05 MG X2, QD
     Dates: start: 201412
  4. IBUPROFEN. [Concomitant]
     Active Substance: IBUPROFEN
     Indication: SURGERY

REACTIONS (3)
  - Wrong technique in drug usage process [Not Recovered/Not Resolved]
  - No adverse event [None]
  - Drug prescribing error [Not Recovered/Not Resolved]

NARRATIVE: CASE EVENT DATE: 201412
